FAERS Safety Report 7256372-6 (Version None)
Quarter: 2011Q1

REPORT INFORMATION
  Report Type: 
  Country: None (occurrence: None)
  Receive Date: 20110129
  Receipt Date: 20100628
  Transmission Date: 20110831
  Serious: No
  Sender: FDA-Public Use
  Company Number: US-ABBOTT-10P-163-0654342-00

PATIENT
  Age: 47 Year
  Sex: Female

DRUGS (16)
  1. HUMIRA [Suspect]
     Indication: ANKYLOSING SPONDYLITIS
     Dates: start: 20100601
  2. DICYCLOMINE [Concomitant]
     Indication: DIARRHOEA
  3. GLYBURIDE AND METFORMIN HYDROCHLORIDE [Concomitant]
     Indication: DIABETES MELLITUS
     Dosage: 5-500MG, 2 IN 1 D
  4. RANITIDINE [Concomitant]
     Indication: ABDOMINAL PAIN UPPER
  5. VERAMIST NASAL SPRAY [Concomitant]
     Indication: HYPERSENSITIVITY
  6. VERAMIST NASAL SPRAY [Concomitant]
     Indication: ASTHMA
  7. CYMBALTA [Concomitant]
     Indication: DEPRESSION
  8. SYNTHROID [Concomitant]
     Indication: THYROID DISORDER
  9. TRAMADOL HCL [Concomitant]
     Indication: PAIN
     Dosage: 1-2, EVERY 6 HRS AS NEEDED
  10. ALLERGY SHOTS [Concomitant]
     Indication: PRODUCT USED FOR UNKNOWN INDICATION
     Dosage: 3, TWICE A WEEK
  11. BACLOFEN [Concomitant]
     Indication: PAIN
  12. ZYRTEC [Concomitant]
     Indication: HYPERSENSITIVITY
  13. VESICARE [Concomitant]
     Indication: URINARY INCONTINENCE
     Dosage: NIGHTLY
  14. OMEPRAZOLE [Concomitant]
     Indication: COLITIS
  15. CYMBALTA [Concomitant]
     Indication: PAIN
  16. ASACOL [Concomitant]
     Indication: CROHN'S DISEASE

REACTIONS (2)
  - HYPERSENSITIVITY [None]
  - SINUSITIS [None]
